FAERS Safety Report 21487714 (Version 1)
Quarter: 2022Q4

REPORT INFORMATION
  Report Type: Spontaneous
  Country: US (occurrence: US)
  Receive Date: 20221020
  Receipt Date: 20221020
  Transmission Date: 20230113
  Serious: No
  Sender: FDA-Public Use
  Company Number: US-ALLERGAN-2212869US

PATIENT
  Age: 59 Year
  Sex: Female

DRUGS (3)
  1. LINZESS [Suspect]
     Active Substance: LINACLOTIDE
     Indication: Product used for unknown indication
     Dosage: 290 MICROGRAM
     Dates: start: 20220409, end: 20220410
  2. LINZESS [Suspect]
     Active Substance: LINACLOTIDE
     Dosage: UNK
     Dates: start: 202203
  3. WARFARIN [Concomitant]
     Active Substance: WARFARIN
     Indication: Product used for unknown indication
     Dosage: 7MG FOUR TIMES A WEEK AND 6MG THREE TIMES A WEEK
     Route: 048

REACTIONS (5)
  - Malaise [Recovering/Resolving]
  - Abdominal discomfort [Recovered/Resolved]
  - Feeling abnormal [Recovering/Resolving]
  - Unevaluable event [Recovering/Resolving]
  - Abdominal pain upper [Recovering/Resolving]

NARRATIVE: CASE EVENT DATE: 20220401
